FAERS Safety Report 8658254 (Version 4)
Quarter: 2012Q4

REPORT INFORMATION
  Report Type: 
  Country: JP (occurrence: JP)
  Receive Date: 20120710
  Receipt Date: 20120923
  Transmission Date: 20130627
  Serious: Yes (Other)
  Sender: FDA-Public Use
  Company Number: JP-US-EMD SERONO, INC.-7144315

PATIENT
  Age: 36 Year
  Sex: Male
  Weight: 65 kg

DRUGS (5)
  1. GONAL-F RFF PEN [Suspect]
     Indication: HYPOGONADISM MALE
     Route: 058
     Dates: start: 20110228, end: 20111212
  2. UNSPECIFIED INGREDIENT [Suspect]
     Indication: HYPOGONADISM MALE
     Route: 058
     Dates: start: 20110228, end: 20111212
  3. NORDITROPIN [Suspect]
     Indication: HYPOPITUITARISM
     Route: 058
     Dates: start: 20100907, end: 20110406
  4. CORTRIL [Concomitant]
     Indication: HYPOPITUITARISM
     Route: 048
  5. THYRADIN [Concomitant]
     Indication: HYPOPITUITARISM
     Route: 048

REACTIONS (1)
  - Brain neoplasm [Recovering/Resolving]
